FAERS Safety Report 6419999-7 (Version None)
Quarter: 2009Q4

REPORT INFORMATION
  Report Type: 
  Country: None (occurrence: None)
  Receive Date: 20091029
  Receipt Date: 20091019
  Transmission Date: 20100525
  Serious: Yes (Hospitalization)
  Sender: FDA-Public Use
  Company Number: JP-PFIZER INC-2009247821

PATIENT
  Age: 65 Year

DRUGS (3)
  1. SUNITINIB MALATE [Suspect]
     Indication: RENAL CELL CARCINOMA
     Dosage: 50 MG, DAILY
     Route: 048
     Dates: start: 20090714
  2. ADALAT [Concomitant]
     Dosage: UNK
     Dates: start: 20081114
  3. THYRADIN S [Concomitant]
     Dosage: UNK
     Dates: start: 20090605

REACTIONS (3)
  - EJECTION FRACTION DECREASED [None]
  - HYPERKALAEMIA [None]
  - HYPERTENSION [None]
